FAERS Safety Report 8924073 (Version 1)
Quarter: 2012Q4

REPORT INFORMATION
  Report Type: 
  Country: GR (occurrence: GR)
  Receive Date: 20121126
  Receipt Date: 20121126
  Transmission Date: 20130627
  Serious: Yes (Life-Threatening, Hospitalization)
  Sender: FDA-Public Use
  Company Number: GR-B.I. PHARMACEUTICALS,INC./RIDGEFIELD-2012-BI-00615GB

PATIENT
  Age: 77 Year
  Sex: Male

DRUGS (3)
  1. PRADAXA [Suspect]
     Indication: ATRIAL FIBRILLATION
     Dosage: 220 mg
     Route: 048
     Dates: start: 20120214, end: 20121113
  2. SAXAGLIPTIN [Concomitant]
     Indication: DIABETES MELLITUS
  3. GLICLAZIDE [Concomitant]
     Indication: DIABETES MELLITUS

REACTIONS (5)
  - Ill-defined disorder [Not Recovered/Not Resolved]
  - Shock [Not Recovered/Not Resolved]
  - Gastrointestinal haemorrhage [Not Recovered/Not Resolved]
  - Haematochezia [Not Recovered/Not Resolved]
  - Diverticulum [Not Recovered/Not Resolved]
